FAERS Safety Report 17123854 (Version 1)
Quarter: 2019Q4

REPORT INFORMATION
  Report Type: Spontaneous
  Country: US (occurrence: US)
  Receive Date: 20191206
  Receipt Date: 20191206
  Transmission Date: 20200122
  Serious: No
  Sender: FDA-Public Use
  Company Number: US-ROCHE-2363640

PATIENT
  Sex: Female
  Weight: 81.27 kg

DRUGS (11)
  1. OXYBUTYNIN. [Concomitant]
     Active Substance: OXYBUTYNIN CHLORIDE
  2. BACLOFEN. [Concomitant]
     Active Substance: BACLOFEN
  3. PREDNISOLONE. [Concomitant]
     Active Substance: PREDNISOLONE
     Dosage: NO
     Route: 065
  4. ACETAMINOPHEN. [Concomitant]
     Active Substance: ACETAMINOPHEN
     Dosage: NO
     Route: 065
  5. TIZANIDINE. [Concomitant]
     Active Substance: TIZANIDINE
  6. OCREVUS [Suspect]
     Active Substance: OCRELIZUMAB
     Indication: MULTIPLE SCLEROSIS
     Dosage: 300MG -21-AUG-2019 AND 300MG -04-SEP-2019 ;ONGOING: UNKNOWN
     Route: 042
     Dates: start: 20180821, end: 20180904
  7. BETASERON [Concomitant]
     Active Substance: INTERFERON BETA-1B
  8. DIPHENHYDRAMINE. [Concomitant]
     Active Substance: DIPHENHYDRAMINE
     Dosage: NO
     Route: 065
  9. TYSABRI [Concomitant]
     Active Substance: NATALIZUMAB
  10. RITUXAN [Suspect]
     Active Substance: RITUXIMAB
     Indication: MULTIPLE SCLEROSIS
     Dosage: NO
     Route: 065
     Dates: start: 2010, end: 201612
  11. AVONEX [Concomitant]
     Active Substance: INTERFERON BETA-1A

REACTIONS (5)
  - Rash macular [Recovered/Resolved]
  - Off label use [Unknown]
  - Intentional product use issue [Unknown]
  - Therapy cessation [Unknown]
  - Back pain [Unknown]
